FAERS Safety Report 7491075-4 (Version None)
Quarter: 2011Q2

REPORT INFORMATION
  Report Type: 
  Country: None (occurrence: None)
  Receive Date: 20110519
  Receipt Date: 20110506
  Transmission Date: 20111010
  Serious: Yes (Death, Hospitalization)
  Sender: FDA-Public Use
  Company Number: MX-ROCHE-771317

PATIENT
  Sex: Male
  Weight: 66.5 kg

DRUGS (15)
  1. TOCILIZUMAB [Suspect]
     Indication: RHEUMATOID ARTHRITIS
     Dosage: DOSE FORM: VIAL
     Route: 042
     Dates: start: 20060111
  2. TOCILIZUMAB [Suspect]
     Dosage: FORM REPORTED AS VIAL, LAST DOSE PRIOR TO SAE: 25 JUNE 2007.
     Route: 042
     Dates: start: 20060822
  3. TOCILIZUMAB [Suspect]
     Route: 042
     Dates: start: 20070402
  4. METHOTREXATE [Suspect]
     Indication: RHEUMATOID ARTHRITIS
     Dosage: FREQUENCY REPORTED AS QS.
     Route: 048
     Dates: start: 20030101, end: 20110328
  5. ACETAMINOPHEN [Concomitant]
     Route: 048
     Dates: start: 20050101
  6. TOCILIZUMAB [Suspect]
     Dosage: LAST DOSE PRIOR TO SAE: 28 FEB 2011
     Route: 042
     Dates: end: 20110328
  7. SINERGIX [Concomitant]
     Dates: start: 20050101
  8. CHLOROQUINE [Concomitant]
     Route: 048
     Dates: start: 20030101
  9. TRAMADOL HCL [Concomitant]
  10. TOCILIZUMAB [Suspect]
     Route: 042
     Dates: start: 20070502
  11. PREDNISONE [Concomitant]
     Route: 048
     Dates: start: 20030101
  12. TOCILIZUMAB [Suspect]
     Route: 042
     Dates: start: 20070530
  13. TOCILIZUMAB [Suspect]
     Route: 042
     Dates: start: 20070625
  14. FOLIC ACID [Concomitant]
     Dosage: TOTAL DAILY DOSE REPORTED AS 4 MG/ QS
     Dates: start: 20050101, end: 20110328
  15. TOCILIZUMAB [Suspect]
     Dosage: PREVIOUSLY ENROLLED IN WA18063, MRA 8MG/KG + MTX
     Route: 042

REACTIONS (1)
  - THROMBOCYTOPENIA [None]
